FAERS Safety Report 4478299-5 (Version None)
Quarter: 2004Q4

REPORT INFORMATION
  Report Type: 
  Country: None (occurrence: None)
  Receive Date: 20041019
  Receipt Date: 20040802
  Transmission Date: 20050328
  Serious: Yes (Hospitalization)
  Sender: FDA-Public Use
  Company Number: ES-ROCHE-376367

PATIENT
  Age: 68 Year
  Sex: Male
  Weight: 80 kg

DRUGS (16)
  1. DACLIZUMAB [Suspect]
     Route: 042
     Dates: start: 20031111, end: 20031111
  2. DACLIZUMAB [Suspect]
     Route: 042
     Dates: start: 20031125, end: 20040109
  3. MYCOPHENOLATE MOFETIL [Suspect]
     Route: 048
     Dates: start: 20031111
  4. VALGANCICLOVIR [Suspect]
     Indication: DRUG USE FOR UNKNOWN INDICATION
     Route: 048
     Dates: start: 20040113, end: 20040117
  5. SIROLIMUS [Suspect]
     Route: 048
     Dates: start: 20031112, end: 20040126
  6. PREDNISONE [Suspect]
     Route: 048
     Dates: start: 20031111
  7. TACROLIMUS [Suspect]
     Route: 048
     Dates: start: 20040212
  8. OMEPRAZOLE [Concomitant]
     Route: 048
     Dates: start: 20031111
  9. 1ALPHA,25-DIHYDROXYVITAMIN D3 [Concomitant]
     Route: 048
     Dates: start: 20031118
  10. COTRIMOXAZOL [Concomitant]
     Route: 048
     Dates: start: 20031113
  11. AMLODIPINO [Concomitant]
     Route: 048
     Dates: start: 20031116
  12. CARVEDILOL [Concomitant]
     Route: 048
     Dates: start: 20031125
  13. SULFATO FERROSO [Concomitant]
     Route: 048
     Dates: start: 20031121, end: 20040115
  14. VALGANCICLOVIR [Concomitant]
     Route: 048
     Dates: start: 20040217, end: 20040315
  15. EPOGEN [Concomitant]
     Route: 058
     Dates: start: 20040309, end: 20040312
  16. DIACEPAM [Concomitant]
     Route: 048
     Dates: start: 20040307, end: 20040312

REACTIONS (9)
  - ANAEMIA [None]
  - CYTOMEGALOVIRUS INFECTION [None]
  - ESCHERICHIA URINARY TRACT INFECTION [None]
  - HAEMODIALYSIS [None]
  - LEUKOPENIA [None]
  - PYELONEPHRITIS ACUTE [None]
  - RENAL HAEMORRHAGE [None]
  - RENAL TUBULAR NECROSIS [None]
  - THROMBOTIC MICROANGIOPATHY [None]
